FAERS Safety Report 13105365 (Version 1)
Quarter: 2017Q1

REPORT INFORMATION
  Report Type: Spontaneous
  Country: US (occurrence: US)
  Receive Date: 20170111
  Receipt Date: 20170111
  Transmission Date: 20170428
  Serious: No
  Sender: FDA-Public Use
  Company Number: US-CELGENEUS-USA-2016126393

PATIENT
  Age: 59 Year
  Sex: Female

DRUGS (2)
  1. OTEZLA [Suspect]
     Active Substance: APREMILAST
     Dosage: 60 MILLIGRAM
     Route: 048
     Dates: start: 201611
  2. OTEZLA [Suspect]
     Active Substance: APREMILAST
     Indication: PSORIATIC ARTHROPATHY
     Dosage: 10 MILLIGRAM?TITRATION PACK
     Route: 048

REACTIONS (6)
  - Frequent bowel movements [Unknown]
  - Abdominal discomfort [Unknown]
  - Haemorrhoids [Unknown]
  - Nausea [Unknown]
  - Gastrointestinal pain [Unknown]
  - Sciatica [Unknown]

NARRATIVE: CASE EVENT DATE: 20161219
